FAERS Safety Report 21700852 (Version 2)
Quarter: 2023Q1

REPORT INFORMATION
  Report Type: Spontaneous
  Country: FR (occurrence: FR)
  Receive Date: 20221208
  Receipt Date: 20230315
  Transmission Date: 20230417
  Serious: Yes (Disabling)
  Sender: FDA-Public Use
  Company Number: FR-TEVA-2022-FR-2833152

PATIENT

DRUGS (2)
  1. CISPLATIN [Suspect]
     Active Substance: CISPLATIN
     Indication: Hepatoblastoma
     Dosage: SIOPEL 3 STANDARD RISK (PLADO) CHEMOTHERAPY REGIMEN: CONTINUOUS 24-HOUR INFUSION 80 MG/M2 PER 3 WEEK
     Route: 050
  2. DOXORUBICIN [Suspect]
     Active Substance: DOXORUBICIN
     Indication: Hepatoblastoma
     Dosage: SIOPEL 3 STANDARD RISK (PLADO) CHEMOTHERAPY REGIMEN: 60 MG/M2 CONTINUOUS 48-HOUR INFUSION PER 2 W...
     Route: 050

REACTIONS (2)
  - Ototoxicity [Unknown]
  - Deafness [Unknown]
